FAERS Safety Report 24018522 (Version 2)
Quarter: 2024Q2

REPORT INFORMATION
  Report Type: Spontaneous
  Country: US (occurrence: US)
  Receive Date: 20240627
  Receipt Date: 20240627
  Transmission Date: 20240716
  Serious: Yes (Hospitalization)
  Sender: FDA-Public Use
  Company Number: US-ROCHE-10000008461

PATIENT
  Sex: Female

DRUGS (2)
  1. AVASTIN [Suspect]
     Active Substance: BEVACIZUMAB
     Indication: Breast cancer
     Route: 065
  2. AVASTIN [Suspect]
     Active Substance: BEVACIZUMAB
     Indication: Hepatic cancer

REACTIONS (6)
  - Arthritis [Unknown]
  - Fall [Unknown]
  - Weight bearing difficulty [Unknown]
  - Nervous system disorder [Unknown]
  - Off label use [Unknown]
  - Lower limb fracture [Unknown]
